FAERS Safety Report 10409566 (Version 2)
Quarter: 2014Q3

REPORT INFORMATION
  Report Type: Report from Study
  Country: JP (occurrence: JP)
  Receive Date: 20140826
  Receipt Date: 20140826
  Transmission Date: 20150326
  Serious: Yes (Hospitalization)
  Sender: FDA-Public Use
  Company Number: JP-ABBVIE-14P-087-1259204-00

PATIENT
  Age: 38 Year
  Sex: Male
  Weight: 57.5 kg

DRUGS (7)
  1. HUMIRA [Suspect]
     Active Substance: ADALIMUMAB
     Indication: PRODUCT USED FOR UNKNOWN INDICATION
     Route: 058
     Dates: start: 20121006, end: 20121006
  2. HUMIRA [Suspect]
     Active Substance: ADALIMUMAB
     Dates: start: 20130423
  3. HUMIRA [Suspect]
     Active Substance: ADALIMUMAB
     Dates: start: 20121020, end: 20121020
  4. HUMIRA [Suspect]
     Active Substance: ADALIMUMAB
     Dates: start: 20121103, end: 20130314
  5. MESALAZINE [Concomitant]
     Active Substance: MESALAMINE
     Indication: CROHN^S DISEASE
     Route: 048
     Dates: end: 20130322
  6. AZATHIOPRINE. [Concomitant]
     Active Substance: AZATHIOPRINE
     Indication: CROHN^S DISEASE
     Route: 048
     Dates: end: 20130322
  7. ENTERAL NUTRITION THERAPY [Concomitant]
     Indication: CROHN^S DISEASE

REACTIONS (2)
  - Small intestinal stenosis [Unknown]
  - Incision site infection [Recovered/Resolved]

NARRATIVE: CASE EVENT DATE: 20130321
